FAERS Safety Report 12993816 (Version 2)
Quarter: 2017Q1

REPORT INFORMATION
  Report Type: Spontaneous
  Country: IT (occurrence: IT)
  Receive Date: 20161202
  Receipt Date: 20170120
  Transmission Date: 20170428
  Serious: Yes (Other)
  Sender: FDA-Public Use
  Company Number: IT-PFIZER INC-2016553281

PATIENT
  Age: 10 Year
  Sex: Male
  Weight: 35 kg

DRUGS (2)
  1. DAUNOXOME [Suspect]
     Active Substance: DAUNORUBICIN CITRATE
     Indication: LEUKAEMIA
     Dosage: UNK
     Route: 042
  2. ARACYTIN [Suspect]
     Active Substance: CYTARABINE
     Indication: LEUKAEMIA
     Dosage: UNK
     Route: 042

REACTIONS (1)
  - Venoocclusive disease [Recovering/Resolving]
